FAERS Safety Report 16152687 (Version 1)
Quarter: 2019Q2

REPORT INFORMATION
  Report Type: Spontaneous
  Country: SE (occurrence: SE)
  Receive Date: 20190403
  Receipt Date: 20190403
  Transmission Date: 20190711
  Serious: Yes (Other)
  Sender: FDA-Public Use
  Company Number: SE-TEVA-2019-SE-1033049

PATIENT
  Age: 84 Year
  Sex: Male

DRUGS (3)
  1. ALFUZOSIN [Suspect]
     Active Substance: ALFUZOSIN
     Dates: end: 201902
  2. WARAN [Concomitant]
     Active Substance: WARFARIN SODIUM
  3. CANDESARTAN. [Suspect]
     Active Substance: CANDESARTAN
     Dates: end: 201902

REACTIONS (1)
  - Acute kidney injury [Recovering/Resolving]

NARRATIVE: CASE EVENT DATE: 2019
